FAERS Safety Report 4752082-5 (Version None)
Quarter: 2005Q3

REPORT INFORMATION
  Report Type: 
  Country: None (occurrence: None)
  Receive Date: 20050824
  Receipt Date: 20050516
  Transmission Date: 20060218
  Serious: Yes (Hospitalization, Disabling)
  Sender: FDA-Public Use
  Company Number: US-MERCK-0505USA01955

PATIENT
  Age: 53 Year
  Sex: Female
  Weight: 73 kg

DRUGS (10)
  1. VIOXX [Suspect]
     Indication: RHEUMATOID ARTHRITIS
     Route: 048
     Dates: start: 20000201, end: 20040930
  2. VIOXX [Suspect]
     Indication: OSTEOARTHRITIS
     Route: 048
     Dates: start: 20000201, end: 20040930
  3. METHOTREXATE [Concomitant]
     Indication: RHEUMATOID ARTHRITIS
     Route: 048
     Dates: start: 19950101
  4. VALIUM [Concomitant]
     Indication: DEPRESSION
     Route: 048
     Dates: start: 19990301, end: 20030201
  5. VALIUM [Concomitant]
     Indication: DISTURBANCE IN ATTENTION
     Route: 048
     Dates: start: 19990301, end: 20030201
  6. SYNTHROID [Concomitant]
     Indication: THYROID DISORDER
     Route: 048
     Dates: start: 19850101
  7. VIVELLE [Concomitant]
     Indication: MENOPAUSE
     Route: 048
     Dates: start: 19990301, end: 20010901
  8. PREDNISONE [Concomitant]
     Route: 065
  9. PROMETRIUM [Concomitant]
     Indication: MENOPAUSE
     Route: 048
     Dates: start: 19990301, end: 20010901
  10. ZOLOFT [Suspect]
     Route: 065
     Dates: end: 20021101

REACTIONS (30)
  - ANAEMIA [None]
  - ANXIETY [None]
  - BACK PAIN [None]
  - BLOOD CHOLESTEROL INCREASED [None]
  - CHEST DISCOMFORT [None]
  - CHEST PAIN [None]
  - CORONARY ARTERY DISEASE [None]
  - CORONARY ARTERY DISSECTION [None]
  - CORONARY ARTERY OCCLUSION [None]
  - CORONARY ARTERY RESTENOSIS [None]
  - DEPRESSION [None]
  - DIVERTICULUM [None]
  - EJECTION FRACTION DECREASED [None]
  - GASTROOESOPHAGEAL REFLUX DISEASE [None]
  - HAEMATOMA [None]
  - HEART RATE INCREASED [None]
  - HYPERTENSION [None]
  - HYPOTENSION [None]
  - MITRAL VALVE INCOMPETENCE [None]
  - MYOCARDIAL INFARCTION [None]
  - MYOCARDIAL ISCHAEMIA [None]
  - OSTEOARTHRITIS [None]
  - OSTEOPOROSIS [None]
  - PALPITATIONS [None]
  - PROCEDURAL SITE REACTION [None]
  - RHEUMATOID ARTHRITIS [None]
  - SINUS DISORDER [None]
  - SWELLING [None]
  - TRICUSPID VALVE INCOMPETENCE [None]
  - VENTRICULAR HYPERTROPHY [None]
